FAERS Safety Report 8247341-8 (Version None)
Quarter: 2012Q1

REPORT INFORMATION
  Report Type: 
  Country: None (occurrence: None)
  Receive Date: 20120330
  Receipt Date: 20120327
  Transmission Date: 20120608
  Serious: Yes (Other)
  Sender: FDA-Public Use
  Company Number: BE-BAYER-2012-009977

PATIENT
  Age: 52 Year
  Sex: Male

DRUGS (1)
  1. BETASERON [Suspect]
     Indication: CLINICALLY ISOLATED SYNDROME
     Dosage: UNK
     Dates: start: 20100312, end: 20111129

REACTIONS (3)
  - HEPATIC FUNCTION ABNORMAL [None]
  - CACHEXIA [None]
  - PANCREATIC CARCINOMA [None]
